FAERS Safety Report 19250646 (Version 1)
Quarter: 2021Q2

REPORT INFORMATION
  Report Type: Spontaneous
  Country: US (occurrence: US)
  Receive Date: 20210512
  Receipt Date: 20210512
  Transmission Date: 20210717
  Serious: No
  Sender: FDA-Public Use
  Company Number: US-RIGEL PHARMACEUTICALS, INC.-2021FOS000227

PATIENT
  Sex: Female
  Weight: 117.87 kg

DRUGS (3)
  1. COVID?19 VACCINE NOS. [Concomitant]
     Active Substance: COVID-19 VACCINE NOS
     Indication: COVID-19 IMMUNISATION
     Dosage: DOSE 2, UNK
  2. COVID?19 VACCINE NOS. [Concomitant]
     Active Substance: COVID-19 VACCINE NOS
     Dosage: DOSE 1, UNK
  3. TAVALISSE [Suspect]
     Active Substance: FOSTAMATINIB
     Indication: IMMUNE THROMBOCYTOPENIA
     Dosage: 100 MG, BID
     Route: 048
     Dates: start: 202004

REACTIONS (3)
  - Emotional disorder [Unknown]
  - Mood altered [Unknown]
  - Loss of personal independence in daily activities [Unknown]
